FAERS Safety Report 23775065 (Version 1)
Quarter: 2024Q2

REPORT INFORMATION
  Report Type: Spontaneous
  Country: US (occurrence: None)
  Receive Date: 20240423
  Receipt Date: 20240423
  Transmission Date: 20240715
  Serious: Yes (Hospitalization)
  Sender: FDA-Public Use
  Company Number: None

PATIENT
  Age: 62 Year
  Sex: Female
  Weight: 120.3 kg

DRUGS (1)
  1. CARBOPLATIN [Suspect]
     Active Substance: CARBOPLATIN
     Dates: start: 20240325, end: 20240325

REACTIONS (10)
  - Infusion related reaction [None]
  - Tachycardia [None]
  - Blood pressure increased [None]
  - Chest pain [None]
  - Choking [None]
  - Chest discomfort [None]
  - Dyspnoea [None]
  - Nausea [None]
  - Vomiting [None]
  - Drug ineffective [None]

NARRATIVE: CASE EVENT DATE: 20240325
